FAERS Safety Report 19759288 (Version 1)
Quarter: 2021Q3

REPORT INFORMATION
  Report Type: Other
  Country: US (occurrence: US)
  Receive Date: 20210829
  Receipt Date: 20210829
  Transmission Date: 20211014
  Serious: Yes (Other)
  Sender: FDA-Public Use
  Company Number: US-APOTEX-2021AP040686

PATIENT
  Age: 70 Year
  Sex: Male

DRUGS (2)
  1. RANITIDINE TABLETS [Suspect]
     Active Substance: RANITIDINE HYDROCHLORIDE
     Indication: GASTRIC ULCER
     Dosage: OTHER (OFF AND ON FOR PERIODS OF TIME, TOOK EVERYDAY WHEN MY STOMACH FLARE UP)
     Route: 065
     Dates: start: 198201, end: 201701
  2. ZANTAC [Suspect]
     Active Substance: RANITIDINE HYDROCHLORIDE
     Indication: GASTRIC ULCER
     Dosage: OTHER (OFF AND ON WHEN NEEDED BECAUSE OF STOMACH FLARE UP)
     Route: 065
     Dates: start: 198201, end: 201701

REACTIONS (1)
  - Bladder cancer [Unknown]

NARRATIVE: CASE EVENT DATE: 20180501
